FAERS Safety Report 6575589-7 (Version None)
Quarter: 2010Q1

REPORT INFORMATION
  Report Type: 
  Country: None (occurrence: None)
  Receive Date: 20100209
  Receipt Date: 20100204
  Transmission Date: 20100710
  Serious: Yes (Other)
  Sender: FDA-Public Use
  Company Number: A0843008A

PATIENT
  Age: 60 Year
  Sex: Female

DRUGS (9)
  1. LAMICTAL [Suspect]
     Dosage: 50MG PER DAY
     Route: 048
     Dates: start: 20100127
  2. SINGULAIR [Concomitant]
  3. VITAMIN [Concomitant]
  4. PREVACID [Concomitant]
  5. BENAZEPRIL HYDROCHLORIDE [Concomitant]
  6. LODINE [Concomitant]
  7. ASPIRIN [Concomitant]
  8. LEXAPRO [Concomitant]
  9. NASONEX [Concomitant]

REACTIONS (4)
  - INAPPROPRIATE SCHEDULE OF DRUG ADMINISTRATION [None]
  - METAMORPHOPSIA [None]
  - PHOTOPHOBIA [None]
  - VISION BLURRED [None]
